FAERS Safety Report 7554464-5 (Version None)
Quarter: 2011Q2

REPORT INFORMATION
  Report Type: 
  Country: None (occurrence: None)
  Receive Date: 20110617
  Receipt Date: 20110531
  Transmission Date: 20111010
  Serious: Yes (Other)
  Sender: FDA-Public Use
  Company Number: A0929701A

PATIENT
  Age: 68 Year
  Sex: Male

DRUGS (7)
  1. COZAAR [Concomitant]
  2. PLAVIX [Concomitant]
  3. FLOMAX [Concomitant]
  4. ATENOLOL [Concomitant]
  5. AVODART [Suspect]
     Indication: BENIGN PROSTATIC HYPERPLASIA
     Route: 048
     Dates: start: 20110305
  6. POTASSIUM [Concomitant]
  7. ASPIRIN [Concomitant]

REACTIONS (2)
  - OEDEMA PERIPHERAL [None]
  - CELLULITIS [None]
